FAERS Safety Report 4823610-6 (Version None)
Quarter: 2005Q4

REPORT INFORMATION
  Report Type: 
  Country: None (occurrence: None)
  Receive Date: 20051109
  Receipt Date: 20051102
  Transmission Date: 20060501
  Serious: Yes (Hospitalization, Disabling)
  Sender: FDA-Public Use
  Company Number: NSADSS2002013269

PATIENT
  Sex: Male
  Weight: 80.29 kg

DRUGS (8)
  1. DURAGESIC-100 [Suspect]
     Route: 062
     Dates: start: 20010829, end: 20011101
  2. LORAZEPAM [Concomitant]
     Indication: INSOMNIA
     Route: 048
  3. ANTI-DEPRESSANT, NOS [Concomitant]
     Route: 048
  4. STADOL [Concomitant]
     Indication: HEADACHE
  5. SYNTHROID [Concomitant]
  6. PROCHLORPERAZINE [Concomitant]
  7. LIPITOR [Concomitant]
     Indication: BLOOD CHOLESTEROL INCREASED
  8. FLURAZEPAM HCL [Concomitant]

REACTIONS (14)
  - DEVICE MALFUNCTION [None]
  - DYSURIA [None]
  - ERECTILE DYSFUNCTION [None]
  - HAEMATURIA [None]
  - HEPATIC CYST [None]
  - IMPLANT EXPULSION [None]
  - LIBIDO DECREASED [None]
  - METASTASES TO LIVER [None]
  - PENILE PROSTHESIS INSERTION [None]
  - SCROTAL PAIN [None]
  - SINUS BRADYCARDIA [None]
  - SPINAL OSTEOARTHRITIS [None]
  - TESTICULAR SWELLING [None]
  - URINARY RETENTION [None]
